FAERS Safety Report 8000303-8 (Version None)
Quarter: 2011Q4

REPORT INFORMATION
  Report Type: 
  Country: None (occurrence: None)
  Receive Date: 20111220
  Receipt Date: 20111220
  Transmission Date: 20120403
  Serious: Yes (Other)
  Sender: FDA-Public Use
  Company Number: None

PATIENT
  Age: 84 Year
  Sex: Male
  Weight: 85.2762 kg

DRUGS (1)
  1. TAMSULOSIN HCL [Suspect]
     Indication: NOCTURIA
     Dosage: 0.4 MG 1 PO QD PO
     Route: 048
     Dates: start: 20101201, end: 20110101

REACTIONS (2)
  - RASH [None]
  - PRODUCT SUBSTITUTION ISSUE [None]
